FAERS Safety Report 5232752-5 (Version None)
Quarter: 2007Q1

REPORT INFORMATION
  Report Type: 
  Country: None (occurrence: None)
  Receive Date: 20070206
  Receipt Date: 20070206
  Transmission Date: 20070707
  Serious: No
  Sender: FDA-Public Use
  Company Number: None

PATIENT
  Age: 61 Year
  Sex: Female
  Weight: 83.9154 kg

DRUGS (3)
  1. CHANTIX [Suspect]
     Indication: SMOKING CESSATION THERAPY
     Dosage: 0.5 MG 1X DAY PO
     Route: 048
     Dates: start: 20070121
  2. CHANTIX [Suspect]
     Indication: SMOKING CESSATION THERAPY
     Dosage: 0.5 MG 1X DAY PO
     Route: 048
     Dates: start: 20070122
  3. CHANTIX [Suspect]
     Indication: SMOKING CESSATION THERAPY
     Dosage: 0.5 MG 1X DAY PO
     Route: 048
     Dates: start: 20070123

REACTIONS (9)
  - BLOOD PRESSURE INCREASED [None]
  - DISTURBANCE IN ATTENTION [None]
  - DIZZINESS [None]
  - DYSPNOEA [None]
  - FEELING ABNORMAL [None]
  - HEART RATE INCREASED [None]
  - HYPOAESTHESIA [None]
  - IMPAIRED WORK ABILITY [None]
  - VISUAL FIELD DEFECT [None]
